FAERS Safety Report 6661689-X (Version None)
Quarter: 2010Q1

REPORT INFORMATION
  Report Type: 
  Country: None (occurrence: None)
  Receive Date: 20100331
  Receipt Date: 20090421
  Transmission Date: 20100710
  Serious: Yes (Other)
  Sender: FDA-Public Use
  Company Number: US-BRISTOL-MYERS SQUIBB COMPANY-14590806

PATIENT
  Age: 54 Year
  Sex: Male

DRUGS (5)
  1. ERBITUX [Suspect]
     Indication: TONSIL CANCER
     Dosage: THEN 250MG/M2
     Route: 040
     Dates: start: 20090410, end: 20090410
  2. KYTRIL [Concomitant]
     Indication: PREMEDICATION
  3. DECADRON [Concomitant]
     Indication: PREMEDICATION
  4. BENADRYL [Concomitant]
     Indication: PREMEDICATION
  5. ZANTAC [Concomitant]
     Indication: PREMEDICATION

REACTIONS (1)
  - ANAPHYLACTIC REACTION [None]
